FAERS Safety Report 4606894-9 (Version None)
Quarter: 2005Q1

REPORT INFORMATION
  Report Type: 
  Country: None (occurrence: None)
  Receive Date: 20050310
  Receipt Date: 20050228
  Transmission Date: 20050727
  Serious: Yes (Death)
  Sender: FDA-Public Use
  Company Number: USA-2005-0019092

PATIENT
  Age: 73 Year
  Sex: Male

DRUGS (1)
  1. MS CONTIN [Suspect]

REACTIONS (1)
  - ROAD TRAFFIC ACCIDENT [None]
